FAERS Safety Report 10561062 (Version 1)
Quarter: 2014Q4

REPORT INFORMATION
  Report Type: Spontaneous
  Country: US (occurrence: US)
  Receive Date: 20141103
  Receipt Date: 20141103
  Transmission Date: 20150529
  Serious: No
  Sender: FDA-Public Use
  Company Number: US-BAYER-2014-158021

PATIENT
  Age: 10 Year
  Sex: Female
  Weight: 66.67 kg

DRUGS (4)
  1. ALEVE [Suspect]
     Active Substance: NAPROXEN SODIUM
     Indication: ANALGESIC THERAPY
     Dosage: 1 DF, ONCE
     Route: 048
     Dates: start: 20141023, end: 20141023
  2. BAYER GENUINE ASPIRIN [Suspect]
     Active Substance: ASPIRIN
     Dosage: 2 DF, UNK
     Route: 048
     Dates: start: 19760704, end: 1986
  3. VALIUM [Concomitant]
     Active Substance: DIAZEPAM
  4. HYDROCODONE [Concomitant]
     Active Substance: HYDROCODONE

REACTIONS (19)
  - Ear discomfort [Not Recovered/Not Resolved]
  - Lip swelling [Not Recovered/Not Resolved]
  - Ear discomfort [Recovered/Resolved]
  - Swelling face [Recovered/Resolved]
  - Paraesthesia oral [Recovered/Resolved]
  - Ear discomfort [Recovered/Resolved]
  - Drug hypersensitivity [Not Recovered/Not Resolved]
  - Urticaria [Not Recovered/Not Resolved]
  - Lip swelling [Recovered/Resolved]
  - Swelling face [Recovered/Resolved]
  - Wheezing [Recovered/Resolved]
  - Paraesthesia oral [Recovered/Resolved]
  - Lip swelling [Recovered/Resolved]
  - Paraesthesia oral [Not Recovered/Not Resolved]
  - Wheezing [Recovered/Resolved]
  - Swelling face [Not Recovered/Not Resolved]
  - Wheezing [Not Recovered/Not Resolved]
  - Urticaria [Recovered/Resolved]
  - Urticaria [Recovered/Resolved]

NARRATIVE: CASE EVENT DATE: 1976
